FAERS Safety Report 14740507 (Version 1)
Quarter: 2018Q2

REPORT INFORMATION
  Report Type: Spontaneous
  Country: US (occurrence: US)
  Receive Date: 20180410
  Receipt Date: 20180410
  Transmission Date: 20180711
  Serious: Yes (Other)
  Sender: FDA-Public Use
  Company Number: US-WEST-WARD PHARMACEUTICALS CORP.-US-H14001-18-02685

PATIENT
  Sex: Male

DRUGS (1)
  1. VINBLASTINE [Suspect]
     Active Substance: VINBLASTINE
     Indication: PRODUCT USED FOR UNKNOWN INDICATION
     Route: 065

REACTIONS (4)
  - Nerve injury [Unknown]
  - Peroneal nerve palsy [Unknown]
  - Neuralgia [Unknown]
  - Balance disorder [Unknown]

NARRATIVE: CASE EVENT DATE: 2007
